FAERS Safety Report 19279592 (Version 1)
Quarter: 2021Q2

REPORT INFORMATION
  Report Type: Spontaneous
  Country: NL (occurrence: DE)
  Receive Date: 20210520
  Receipt Date: 20210520
  Transmission Date: 20210717
  Serious: Yes (Other)
  Sender: FDA-Public Use
  Company Number: DE-FRESENIUS KABI-FK202104960

PATIENT
  Age: 39 Year
  Sex: Female
  Weight: 65 kg

DRUGS (10)
  1. METAMIZOLE [Concomitant]
     Active Substance: METAMIZOLE
     Indication: SPINAL PAIN
     Dosage: UNK
     Route: 065
  2. IRINOTECAN (MANUFACTURER UNKNOWN) [Suspect]
     Active Substance: IRINOTECAN
     Indication: SMALL CELL LUNG CANCER METASTATIC
     Dosage: UNK (STARTED ON AN UNKNOWN DATE IN 2021)
     Route: 065
  3. BISACODYL. [Suspect]
     Active Substance: BISACODYL
     Indication: CONSTIPATION
     Dosage: 10 DRP
     Route: 065
     Dates: start: 20210218, end: 20210224
  4. SODIUM BICARBONATE/POTASSIUM CHLORIDE/SODIUM CHLORIDE/MACROGOL 3350 [Suspect]
     Active Substance: POLYETHYLENE GLYCOL 3350\POTASSIUM CHLORIDE\SODIUM BICARBONATE\SODIUM CHLORIDE
     Indication: CONSTIPATION PROPHYLAXIS
     Dosage: 1 SACHET, QD (1?0?0)
     Route: 065
     Dates: start: 20200415, end: 20210217
  5. METAMIZOLE [Concomitant]
     Active Substance: METAMIZOLE
     Indication: ABDOMINAL PAIN
  6. GEMCITABINE. [Suspect]
     Active Substance: GEMCITABINE
     Indication: SMALL CELL LUNG CANCER METASTATIC
     Dosage: UNK (STARTED ON AN UNKNOWN DATE IN 2021)
     Route: 065
  7. HYDROMORPHONE [Suspect]
     Active Substance: HYDROMORPHONE
     Indication: BREAKTHROUGH PAIN
     Dosage: 1 DF, BID (1?0?1) (STOPPED ON AN UNKNOWN DATE IN 2021)
     Route: 048
  8. SODIUM BICARBONATE/POTASSIUM CHLORIDE/SODIUM CHLORIDE/MACROGOL 3350 [Suspect]
     Active Substance: POLYETHYLENE GLYCOL 3350\POTASSIUM CHLORIDE\SODIUM BICARBONATE\SODIUM CHLORIDE
     Dosage: 1 SACHET, QD (1?0?0)
     Route: 065
     Dates: start: 20210218, end: 20210224
  9. HYDROMORPHONE HYDROCHLORIDE. [Suspect]
     Active Substance: HYDROMORPHONE HYDROCHLORIDE
     Indication: BREAKTHROUGH PAIN
     Dosage: UNK
     Route: 065
  10. SODIUM PICOSULFATE [Suspect]
     Active Substance: SODIUM PICOSULFATE
     Indication: CONSTIPATION
     Dosage: 20 DRP, PRN
     Route: 065
     Dates: start: 20200415, end: 20210217

REACTIONS (7)
  - Dyschezia [Unknown]
  - Drug ineffective [Unknown]
  - Nausea [Unknown]
  - Constipation [Recovering/Resolving]
  - Vomiting [Unknown]
  - Asthenia [Unknown]
  - Impaired gastric emptying [Unknown]
